FAERS Safety Report 9387101 (Version 1)
Quarter: 2013Q3

REPORT INFORMATION
  Report Type: Spontaneous
  Country: GB (occurrence: None)
  Receive Date: 20130702
  Receipt Date: 20130702
  Transmission Date: 20140515
  Serious: Yes (Other)
  Sender: FDA-Public Use
  Company Number: AUR-APL-2013-05373

PATIENT
  Age: 34 Year
  Sex: Male
  Weight: 98.8 kg

DRUGS (9)
  1. SERTRALINE [Suspect]
     Indication: PRODUCT USED FOR UNKNOWN INDICATION
  2. DIAZEPAM (DIAZEPAM) [Concomitant]
  3. FOLIC ACID (FOLIC ACID) [Concomitant]
  4. LANSOPRAZOLE (LANSOPRAZOLE) [Concomitant]
  5. LAXIDO (ELECTROLYTES NOS W/MACROGOL 3350) [Concomitant]
  6. LEVETIRACETAM (LEVETIRACETAM) [Concomitant]
  7. RAMIPRIL (RAMIPRIL) [Concomitant]
  8. RANITIDINE (RANITIDINE) [Concomitant]
  9. TRAMADOL (TRAMADOL) [Concomitant]

REACTIONS (1)
  - Photosensitivity reaction [None]
